FAERS Safety Report 12299753 (Version 4)
Quarter: 2016Q2

REPORT INFORMATION
  Report Type: Report from Study
  Country: US (occurrence: US)
  Receive Date: 20160425
  Receipt Date: 20160524
  Transmission Date: 20160815
  Serious: Yes (Hospitalization, Other)
  Sender: FDA-Public Use
  Company Number: PHHY2016US053928

PATIENT
  Age: 7 Year
  Sex: Female
  Weight: 57.8 kg

DRUGS (13)
  1. ILARIS [Suspect]
     Active Substance: CANAKINUMAB
     Indication: JUVENILE IDIOPATHIC ARTHRITIS
     Dosage: 180 MG, QD
     Route: 058
     Dates: start: 20160325, end: 20160413
  2. MEDROL [Concomitant]
     Active Substance: METHYLPREDNISOLONE
     Indication: PRODUCT USED FOR UNKNOWN INDICATION
     Dosage: 40 MG, QD
     Route: 065
  3. PREDNISOLONE ACETATE. [Concomitant]
     Active Substance: PREDNISOLONE ACETATE
     Indication: UVEITIS
     Dosage: 3 DRP, QD
     Route: 065
     Dates: start: 201512
  4. CICLOSPORIN [Suspect]
     Active Substance: CYCLOSPORINE
     Dosage: 100 MG, QD
     Route: 065
     Dates: start: 20160309
  5. NAPROXEN. [Concomitant]
     Active Substance: NAPROXEN
     Indication: ARTHRALGIA
     Dosage: 500 MG, QD
     Route: 065
     Dates: start: 20150901, end: 20151028
  6. ILARIS [Suspect]
     Active Substance: CANAKINUMAB
     Dosage: 180 MG, UNK
     Route: 058
     Dates: start: 20160428
  7. CICLOSPORIN [Suspect]
     Active Substance: CYCLOSPORINE
     Indication: JUVENILE IDIOPATHIC ARTHRITIS
     Dosage: 100 MG, QD
     Route: 065
     Dates: start: 20160113, end: 20160211
  8. NAPROXEN. [Concomitant]
     Active Substance: NAPROXEN
     Indication: INFLAMMATION
     Dosage: 1000 MG, QD
     Route: 065
     Dates: start: 20160113, end: 20160413
  9. FERROUS SULFATE. [Concomitant]
     Active Substance: FERROUS SULFATE
     Indication: ANAEMIA
     Dosage: 325 MG, QD
     Route: 065
     Dates: start: 201601
  10. NAPROXEN. [Concomitant]
     Active Substance: NAPROXEN
     Indication: JUVENILE IDIOPATHIC ARTHRITIS
     Dosage: 500 MG, UNK
     Route: 065
     Dates: start: 20160420
  11. CICLOSPORIN [Suspect]
     Active Substance: CYCLOSPORINE
     Dosage: 150 MG, QD
     Route: 065
     Dates: start: 20160211, end: 20160309
  12. OMEPRAZOLE. [Concomitant]
     Active Substance: OMEPRAZOLE
     Indication: PROPHYLAXIS AGAINST GASTROINTESTINAL ULCER
     Dosage: 40 MG, QD
     Route: 065
     Dates: start: 201509, end: 20160413
  13. MEDROL [Concomitant]
     Active Substance: METHYLPREDNISOLONE
     Dosage: 38 MG, QD
     Route: 065

REACTIONS (9)
  - Abasia [Recovered/Resolved]
  - Red blood cell sedimentation rate increased [Unknown]
  - Fatigue [Unknown]
  - Arthritis [Unknown]
  - Joint swelling [Recovered/Resolved]
  - Drug ineffective [Unknown]
  - Hepatosplenomegaly [Unknown]
  - Anaemia [Recovered/Resolved]
  - Eosinophil count increased [Unknown]

NARRATIVE: CASE EVENT DATE: 20160413
